FAERS Safety Report 4646381-5 (Version None)
Quarter: 2005Q3

REPORT INFORMATION
  Report Type: 
  Country: None (occurrence: None)
  Receive Date: 20050425
  Receipt Date: 20050331
  Transmission Date: 20060218
  Serious: Yes (Life-Threatening)
  Sender: FDA-Public Use
  Company Number: 200410595BYL

PATIENT
  Age: 2 Month
  Sex: Male
  Weight: 6 kg

DRUGS (3)
  1. GAMIMUNE N 5% [Suspect]
     Indication: KAWASAKI'S DISEASE
     Dosage: 5 G, TOTAL DAILY
     Dates: start: 20041026, end: 20041030
  2. MEROPEN [Concomitant]
  3. FROBEN [Concomitant]

REACTIONS (4)
  - ALANINE AMINOTRANSFERASE INCREASED [None]
  - ASPARTATE AMINOTRANSFERASE INCREASED [None]
  - HEPATITIS A ANTIBODY POSITIVE [None]
  - LIVER DISORDER [None]
